FAERS Safety Report 4449593-9 (Version None)
Quarter: 2004Q3

REPORT INFORMATION
  Report Type: 
  Country: None (occurrence: None)
  Receive Date: 20040913
  Receipt Date: 20040913
  Transmission Date: 20050211
  Serious: Yes (Hospitalization)
  Sender: FDA-Public Use
  Company Number: None

PATIENT
  Sex: Male
  Weight: 61.6892 kg

DRUGS (4)
  1. TOPOTECAN 4 MG VIALS GLAXOSMITHKLINE [Suspect]
     Indication: SMALL CELL LUNG CANCER STAGE UNSPECIFIED
     Dosage: 4 MG/M2 WEEKLY IV
     Route: 042
     Dates: start: 20040817, end: 20040831
  2. ANZEMET [Concomitant]
  3. ARANESP [Concomitant]
  4. EPOGEN [Concomitant]

REACTIONS (4)
  - ASTHENIA [None]
  - CONFUSIONAL STATE [None]
  - DISORIENTATION [None]
  - DIZZINESS POSTURAL [None]
